FAERS Safety Report 15211471 (Version 1)
Quarter: 2018Q3

REPORT INFORMATION
  Report Type: Spontaneous
  Country: US (occurrence: US)
  Receive Date: 20180630
  Receipt Date: 20180630
  Transmission Date: 20181010
  Serious: Yes (Hospitalization)
  Sender: FDA-Public Use
  Company Number: None

PATIENT
  Age: 61 Year
  Sex: Female
  Weight: 57 kg

DRUGS (4)
  1. LEUCOVORIN CALCIUM. [Suspect]
     Active Substance: LEUCOVORIN CALCIUM
     Dates: end: 20180614
  2. ELOXATIN [Suspect]
     Active Substance: OXALIPLATIN
     Dates: end: 20180614
  3. 5?FLUOROURACIL (5?FU) [Suspect]
     Active Substance: FLUOROURACIL
     Dates: end: 20180614
  4. CAMPTOSAR [Suspect]
     Active Substance: IRINOTECAN HYDROCHLORIDE
     Dates: end: 20180614

REACTIONS (9)
  - Biliary dilatation [None]
  - Vomiting [None]
  - Transaminases increased [None]
  - Abdominal pain upper [None]
  - Pyrexia [None]
  - Pneumobilia [None]
  - White blood cell count increased [None]
  - Cholangitis [None]
  - Chills [None]

NARRATIVE: CASE EVENT DATE: 20180624
